FAERS Safety Report 9688331 (Version 2)
Quarter: 2013Q4

REPORT INFORMATION
  Report Type: Report from Study
  Country: AR (occurrence: AR)
  Receive Date: 20131114
  Receipt Date: 20131118
  Transmission Date: 20140711
  Serious: Yes (Hospitalization)
  Sender: FDA-Public Use
  Company Number: PHHY2013AR129995

PATIENT
  Age: 61 Year
  Sex: Male

DRUGS (2)
  1. EXFORGE [Suspect]
     Indication: HYPERTENSION
     Dosage: 1 DF (160/5 MG), A DAY
     Route: 048
  2. EXFORGE [Suspect]
     Dosage: 160/5 MG, UNK

REACTIONS (2)
  - Cerebrovascular accident [Recovering/Resolving]
  - Paraesthesia [Recovering/Resolving]
